FAERS Safety Report 7736306-8 (Version None)
Quarter: 2011Q3

REPORT INFORMATION
  Report Type: 
  Country: None (occurrence: None)
  Receive Date: 20110908
  Receipt Date: 20110902
  Transmission Date: 20111222
  Serious: Yes (Hospitalization)
  Sender: FDA-Public Use
  Company Number: US-ABBOTT-11P-163-0851695-00

PATIENT
  Age: 60 Year
  Sex: Male

DRUGS (3)
  1. PROCARDIA [Concomitant]
     Indication: HYPERTENSION
     Dosage: DAILY
     Route: 048
  2. SULFASALAZINE [Concomitant]
     Indication: CROHN'S DISEASE
     Route: 048
  3. HUMIRA [Suspect]
     Indication: ANKYLOSING SPONDYLITIS
     Dates: start: 20110501, end: 20110701

REACTIONS (3)
  - HEADACHE [None]
  - DIZZINESS [None]
  - CEREBROVASCULAR ACCIDENT [None]
